FAERS Safety Report 24324506 (Version 1)
Quarter: 2024Q3

REPORT INFORMATION
  Report Type: Other
  Country: CN (occurrence: CN)
  Receive Date: 20240916
  Receipt Date: 20240916
  Transmission Date: 20241017
  Serious: Yes (Death, Hospitalization)
  Sender: DEXCEL
  Company Number: CN-DEXPHARM-2024-3059

PATIENT
  Age: 53 Year
  Sex: Male

DRUGS (11)
  1. OMEPRAZOLE SODIUM [Suspect]
     Active Substance: OMEPRAZOLE SODIUM
  2. PANTOPRAZOLE SODIUM [Suspect]
     Active Substance: PANTOPRAZOLE SODIUM
  3. DICLOFENAC SODIUM [Suspect]
     Active Substance: DICLOFENAC\DICLOFENAC SODIUM
     Indication: Analgesic therapy
  4. LIDOCAINE [Suspect]
     Active Substance: LIDOCAINE
     Indication: Analgesic therapy
     Dosage: LIDOCAINE INJECTION 2ML
     Route: 050
  5. RABEPRAZOLE [Concomitant]
     Active Substance: RABEPRAZOLE
     Dosage: RABEPRAZOLE INJECTION 20MG WAS GIVEN THROUGH IV DRIP OF 0.9% 100ML OF SODIUM-CHLORIDE INJECTION O...
  6. Drotalverine [Concomitant]
     Dosage: DROTALVERINE INJECTION 80MG VIA IV DRIP OF 5% 250ML GLUCOSE INJECTION TWICE DAILY
  7. SODIUM [Concomitant]
     Active Substance: SODIUM
  8. POTASSIUM [Concomitant]
     Active Substance: POTASSIUM
  9. MAGNESIUM [Concomitant]
     Active Substance: MAGNESIUM
  10. CALCIUM [Concomitant]
     Active Substance: CALCIUM
  11. DEXTROSE [Concomitant]
     Active Substance: DEXTROSE\DEXTROSE MONOHYDRATE
     Dosage: GLUCOSE INJECTION 500ML VIA IV DRIP, ONCE DAILY

REACTIONS (1)
  - Hypoglycaemia [Fatal]
